FAERS Safety Report 6343333-4 (Version None)
Quarter: 2009Q3

REPORT INFORMATION
  Report Type: 
  Country: None (occurrence: None)
  Receive Date: 20090908
  Receipt Date: 20090828
  Transmission Date: 20100115
  Serious: Yes (Hospitalization)
  Sender: FDA-Public Use
  Company Number: PHHY2009GB34510

PATIENT
  Sex: Male

DRUGS (2)
  1. CLOZARIL [Suspect]
     Dosage: UNK
     Dates: start: 20080630
  2. CLOZARIL [Suspect]
     Dosage: 12.5 MG, UNK

REACTIONS (2)
  - MENTAL IMPAIRMENT [None]
  - TREATMENT NONCOMPLIANCE [None]
